FAERS Safety Report 15799234 (Version 2)
Quarter: 2019Q1

REPORT INFORMATION
  Report Type: Spontaneous
  Country: US (occurrence: US)
  Receive Date: 20190108
  Receipt Date: 20190201
  Transmission Date: 20190417
  Serious: Yes (Other)
  Sender: FDA-Public Use
  Company Number: US-JAZZ-JPI-P-022026

PATIENT
  Age: 51 Year
  Sex: Male
  Weight: 118.18 kg

DRUGS (25)
  1. LIDOCAINE. [Concomitant]
     Active Substance: LIDOCAINE
  2. MS CONTIN [Concomitant]
     Active Substance: MORPHINE SULFATE
  3. XYREM [Suspect]
     Active Substance: SODIUM OXYBATE
     Dosage: SINGLE (4 GM FIRST DOSE/3 GM SECOND DOSE)
     Route: 048
     Dates: start: 20121009
  4. TRILEPTAL [Concomitant]
     Active Substance: OXCARBAZEPINE
  5. MODAFINIL. [Concomitant]
     Active Substance: MODAFINIL
  6. OMEPRAZOLE. [Concomitant]
     Active Substance: OMEPRAZOLE
  7. AMBIEN [Concomitant]
     Active Substance: ZOLPIDEM TARTRATE
  8. PREDNISONE. [Concomitant]
     Active Substance: PREDNISONE
  9. XYREM [Suspect]
     Active Substance: SODIUM OXYBATE
     Indication: INSOMNIA
     Dosage: UNK UNK, SINGLE
     Route: 048
     Dates: start: 2010, end: 20101201
  10. XYREM [Suspect]
     Active Substance: SODIUM OXYBATE
     Dosage: 4 G, BID
     Route: 048
     Dates: start: 20101202, end: 20121008
  11. IODINE. [Suspect]
     Active Substance: IODINE
     Indication: PRODUCT USED FOR UNKNOWN INDICATION
  12. ZANAFLEX [Concomitant]
     Active Substance: TIZANIDINE HYDROCHLORIDE
  13. VALIUM [Concomitant]
     Active Substance: DIAZEPAM
  14. FISH OIL [Concomitant]
     Active Substance: FISH OIL
  15. CYMBALTA [Concomitant]
     Active Substance: DULOXETINE HYDROCHLORIDE
  16. INDOMETACIN [Concomitant]
     Active Substance: INDOMETHACIN
  17. AMPHETAMINE [Concomitant]
     Active Substance: AMPHETAMINE
  18. REMERON [Concomitant]
     Active Substance: MIRTAZAPINE
  19. MELATONIN [Concomitant]
     Active Substance: MELATONIN
  20. FENTANYL. [Concomitant]
     Active Substance: FENTANYL
  21. BACLOFEN. [Concomitant]
     Active Substance: BACLOFEN
  22. XYREM [Suspect]
     Active Substance: SODIUM OXYBATE
     Indication: PAIN
     Dosage: 3 G, BID
     Route: 048
     Dates: start: 20101029, end: 2010
  23. XYREM [Suspect]
     Active Substance: SODIUM OXYBATE
     Dosage: SINGLE (4 GM 1ST DOSE/3-4 GM 2ND DOSE)
     Route: 048
  24. TOPAMAX [Concomitant]
     Active Substance: TOPIRAMATE
  25. OXYCODONE [Concomitant]
     Active Substance: OXYCODONE

REACTIONS (21)
  - Accident [Unknown]
  - Weight increased [Not Recovered/Not Resolved]
  - Pain [Unknown]
  - Road traffic accident [Recovered/Resolved]
  - Condition aggravated [Not Recovered/Not Resolved]
  - Iodine allergy [Unknown]
  - Musculoskeletal pain [Not Recovered/Not Resolved]
  - Concussion [Recovering/Resolving]
  - Condition aggravated [Unknown]
  - Vertigo [Unknown]
  - Back pain [Unknown]
  - Head injury [Unknown]
  - Fall [Recovered/Resolved]
  - Pre-existing condition improved [Unknown]
  - Limb injury [Unknown]
  - Accident at work [Not Recovered/Not Resolved]
  - Hypoaesthesia [Not Recovered/Not Resolved]
  - Injury [Not Recovered/Not Resolved]
  - Balance disorder [Not Recovered/Not Resolved]
  - Neck pain [Unknown]
  - Neuralgia [Not Recovered/Not Resolved]

NARRATIVE: CASE EVENT DATE: 201110
